FAERS Safety Report 9531982 (Version 2)
Quarter: 2013Q3

REPORT INFORMATION
  Report Type: Spontaneous
  Country: JP (occurrence: JP)
  Receive Date: 20130918
  Receipt Date: 20130918
  Transmission Date: 20140515
  Serious: Yes (Hospitalization)
  Sender: FDA-Public Use
  Company Number: JP-PFIZER INC-2013247071

PATIENT
  Age: 24 Year
  Sex: Female
  Weight: 47 kg

DRUGS (6)
  1. LYRICA [Suspect]
     Indication: PAIN IN EXTREMITY
     Dosage: 75 MG, 1X/DAY
     Route: 048
  2. LYRICA [Suspect]
     Indication: HYPOAESTHESIA
     Dosage: 75 MG/DAY
     Route: 048
     Dates: start: 20130820, end: 20130822
  3. RIZABEN [Suspect]
     Indication: TARSAL TUNNEL SYNDROME
     Dosage: 100 MG, 3X/DAY
     Route: 048
     Dates: start: 20130822, end: 20130823
  4. RIZABEN [Suspect]
     Indication: HYPERTROPHIC SCAR
  5. YOKUININ [Concomitant]
     Indication: SKIN PAPILLOMA
     Dosage: 1 TABLET, TWICE DAILY
     Route: 048
     Dates: start: 201209, end: 20130823
  6. HICORT [Concomitant]
     Indication: TARSAL TUNNEL SYNDROME
     Dosage: 4 MG, ONCE A WEEK OR TWO WEEKS
     Dates: start: 20130620, end: 20130813

REACTIONS (5)
  - Altered state of consciousness [Recovered/Resolved]
  - Blood glucose increased [Recovered/Resolved]
  - Malaise [Recovered/Resolved]
  - Dizziness [Recovered/Resolved]
  - Decreased appetite [Recovered/Resolved]
